FAERS Safety Report 7516914-X (Version None)
Quarter: 2011Q2

REPORT INFORMATION
  Report Type: 
  Country: None (occurrence: None)
  Receive Date: 20110429
  Receipt Date: 20101005
  Transmission Date: 20111010
  Serious: Yes (Other)
  Sender: FDA-Public Use
  Company Number: US-JNJFOC-20100804046

PATIENT
  Age: 18 Month
  Sex: Female
  Weight: 8.6183 kg

DRUGS (1)
  1. CONCENTRATED TYLENOL INFANT DROPS [Suspect]
     Indication: PYREXIA
     Dosage: 375 MG, 1 IN 4 HOUR, ORAL
     Route: 048
     Dates: start: 20100804, end: 20100805

REACTIONS (3)
  - PRODUCT QUALITY ISSUE [None]
  - OVERDOSE [None]
  - DRUG INEFFECTIVE [None]
